FAERS Safety Report 4507538-7 (Version None)
Quarter: 2004Q4

REPORT INFORMATION
  Report Type: 
  Country: None (occurrence: None)
  Receive Date: 20041018
  Receipt Date: 20040920
  Transmission Date: 20050328
  Serious: No
  Sender: FDA-Public Use
  Company Number: 208466

PATIENT
  Age: 13 Year
  Sex: Male

DRUGS (6)
  1. XOLAIR [Suspect]
     Indication: ASTHMA
     Dosage: 225 MG, Q2W, SUBCUTANEOUS
     Route: 058
     Dates: start: 20031112
  2. PREDNISONE [Concomitant]
  3. SINGULAIR [Concomitant]
  4. FLOVENT [Concomitant]
  5. SEREVENT [Concomitant]
  6. ALBUTEROL (ALBUTEROL SULFATE, ALBUTEROL) [Concomitant]

REACTIONS (1)
  - LETHARGY [None]
